FAERS Safety Report 5189332-X (Version None)
Quarter: 2006Q4

REPORT INFORMATION
  Report Type: 
  Country: None (occurrence: None)
  Receive Date: 20061221
  Receipt Date: 20061005
  Transmission Date: 20070319
  Serious: No
  Sender: FDA-Public Use
  Company Number: US-AMGEN-US196139

PATIENT
  Sex: Female

DRUGS (2)
  1. ENBREL [Suspect]
     Indication: RHEUMATOID ARTHRITIS
     Route: 058
     Dates: start: 20001201
  2. METHOTREXATE [Concomitant]
     Route: 048
     Dates: start: 20000101

REACTIONS (6)
  - BUNION [None]
  - CONDITION AGGRAVATED [None]
  - FOOT OPERATION [None]
  - INJECTION SITE IRRITATION [None]
  - NODULE ON EXTREMITY [None]
  - RHEUMATOID ARTHRITIS [None]
